FAERS Safety Report 8488812-9 (Version None)
Quarter: 2012Q3

REPORT INFORMATION
  Report Type: 
  Country: None (occurrence: None)
  Receive Date: 20120705
  Receipt Date: 20120702
  Transmission Date: 20120928
  Serious: No
  Sender: FDA-Public Use
  Company Number: US-B.I. PHARMACEUTICALS,INC./RIDGEFIELD-2012-BP-14852BP

PATIENT
  Sex: Male

DRUGS (6)
  1. CARVEDILOL [Concomitant]
  2. FUROSEMIDE [Concomitant]
  3. LISINOPRIL [Concomitant]
  4. POTASSIUM CHLORIDE [Concomitant]
  5. ALLOPURINOL [Concomitant]
     Route: 048
  6. PRADAXA [Suspect]
     Indication: ATRIAL FIBRILLATION
     Dosage: 300 MG
     Route: 048
     Dates: start: 20120501

REACTIONS (1)
  - SCAB [None]
